FAERS Safety Report 4403162-5 (Version None)
Quarter: 2004Q3

REPORT INFORMATION
  Report Type: 
  Country: None (occurrence: None)
  Receive Date: 20040719
  Receipt Date: 20040702
  Transmission Date: 20050211
  Serious: Yes (Death)
  Sender: FDA-Public Use
  Company Number: 171632

PATIENT
  Age: 44 Year
  Sex: Female
  Weight: 68.0396 kg

DRUGS (8)
  1. AVONEX [Suspect]
     Indication: MULTIPLE SCLEROSIS
     Dosage: 30 MCG QW IM
     Dates: start: 20020916, end: 20030330
  2. ZOLOFT [Concomitant]
  3. RITALIN [Concomitant]
  4. DOXEPIN HCL [Concomitant]
  5. DOCUSATE [Concomitant]
  6. THYROID (NOS) [Concomitant]
  7. MULTIVITAMIN [Concomitant]
  8. VISTARIL [Concomitant]

REACTIONS (1)
  - DEATH [None]
